FAERS Safety Report 25879351 (Version 2)
Quarter: 2025Q4

REPORT INFORMATION
  Report Type: Spontaneous
  Country: US (occurrence: US)
  Receive Date: 20251003
  Receipt Date: 20251024
  Transmission Date: 20260117
  Serious: No
  Sender: PFIZER
  Company Number: US-PFIZER INC-202500196108

PATIENT
  Age: 39 Year
  Sex: Female
  Weight: 81.179 kg

DRUGS (1)
  1. NURTEC ODT [Suspect]
     Active Substance: RIMEGEPANT SULFATE
     Indication: Migraine
     Dosage: UNK
     Route: 048

REACTIONS (2)
  - Pain [Recovered/Resolved]
  - Oral discomfort [Recovered/Resolved]
